FAERS Safety Report 9753336 (Version 1)
Quarter: 2013Q4

REPORT INFORMATION
  Report Type: Spontaneous
  Country: US (occurrence: US)
  Receive Date: 20131213
  Receipt Date: 20131213
  Transmission Date: 20140711
  Serious: No
  Sender: FDA-Public Use
  Company Number: US-TEVA-405502USA

PATIENT
  Age: 37 Year
  Sex: Female
  Weight: 87.62 kg

DRUGS (5)
  1. PARAGARD 380A [Suspect]
     Indication: CONTRACEPTION
     Route: 015
     Dates: start: 20130107, end: 20130514
  2. BUPROPION [Concomitant]
     Indication: DEPRESSION
  3. LEVOTHYROXINE [Concomitant]
     Indication: HYPOTHYROIDISM
  4. LISINOPRIL [Concomitant]
     Indication: HYPERTENSION
  5. STRATTERA [Concomitant]
     Indication: PSYCHOMOTOR HYPERACTIVITY

REACTIONS (1)
  - Device expulsion [Recovered/Resolved]
